FAERS Safety Report 13782788 (Version 1)
Quarter: 2017Q3

REPORT INFORMATION
  Report Type: Spontaneous
  Country: FR (occurrence: FR)
  Receive Date: 20170724
  Receipt Date: 20170724
  Transmission Date: 20171127
  Serious: Yes (Hospitalization, Other)
  Sender: FDA-Public Use
  Company Number: FR-PFIZER INC-2017314863

PATIENT
  Age: 70 Year
  Sex: Male

DRUGS (11)
  1. OMEXEL [Concomitant]
     Active Substance: TAMSULOSIN HYDROCHLORIDE
  2. COVERAM [Concomitant]
     Active Substance: AMLODIPINE\PERINDOPRIL
  3. IMOVANE [Concomitant]
     Active Substance: ZOPICLONE
  4. COLCHICINE OPOCALCIUM [Suspect]
     Active Substance: COLCHICINE
     Dosage: 1 MG, 2X/DAY
     Route: 048
     Dates: end: 20170625
  5. LYRICA [Suspect]
     Active Substance: PREGABALIN
     Indication: BACK PAIN
     Dosage: UNK
     Route: 048
     Dates: start: 20170619, end: 20170627
  6. FLUDEX /00340101/ [Concomitant]
     Active Substance: INDAPAMIDE
  7. GANFORT [Concomitant]
     Active Substance: BIMATOPROST\TIMOLOL
  8. TAHOR [Concomitant]
     Active Substance: ATORVASTATIN CALCIUM
  9. DAFALGAN CODEINE [Concomitant]
     Active Substance: ACETAMINOPHEN\CODEINE PHOSPHATE
  10. COLCHICINE OPOCALCIUM [Suspect]
     Active Substance: COLCHICINE
     Indication: GOUT
     Dosage: 1 MG, DAILY
     Route: 048
     Dates: start: 20170620
  11. TARKA [Concomitant]
     Active Substance: TRANDOLAPRIL\VERAPAMIL HYDROCHLORIDE

REACTIONS (4)
  - Erythema [Recovered/Resolved]
  - Excoriation [Unknown]
  - Hepatitis [Recovering/Resolving]
  - Pruritus [Recovered/Resolved]

NARRATIVE: CASE EVENT DATE: 20170625
